FAERS Safety Report 7859832 (Version 2)
Quarter: 2014Q2

REPORT INFORMATION
  Report Type: Spontaneous
  Country: DE (occurrence: None)
  Receive Date: 20110222
  Receipt Date: 20140416
  Transmission Date: 20141212
  Serious: Yes (Other)
  Sender: FDA-Public Use
  Company Number: AUR-APL-2011-00531

PATIENT
  Age: 17 Year
  Sex: Female

DRUGS (1)
  1. TOPIRAMATE [Suspect]
     Indication: PRODUCT USED FOR UNKNOWN INDICATION
     Dosage: 50-75MG NIGHTLY

REACTIONS (7)
  - Alice in wonderland syndrome [None]
  - Depression [None]
  - Aggression [None]
  - Mood swings [None]
  - Paraesthesia [None]
  - Alopecia [None]
  - Headache [None]
